FAERS Safety Report 7509512-5 (Version None)
Quarter: 2011Q2

REPORT INFORMATION
  Report Type: 
  Country: None (occurrence: None)
  Receive Date: 20110527
  Receipt Date: 20110523
  Transmission Date: 20111010
  Serious: No
  Sender: FDA-Public Use
  Company Number: US-PFIZER INC-2011112696

PATIENT
  Sex: Female

DRUGS (5)
  1. KLONOPIN [Concomitant]
     Dosage: 1 MG, DAILY AT NIGHT
  2. LISINOPRIL [Concomitant]
     Dosage: 20/12.5 MG, DAILY
  3. PRISTIQ [Suspect]
     Indication: MAJOR DEPRESSION
     Dosage: 50 MG, DAILY
     Route: 048
     Dates: start: 20110501, end: 20110519
  4. PROZAC [Suspect]
     Indication: MAJOR DEPRESSION
     Dosage: UNK
  5. POTASSIUM [Concomitant]
     Dosage: 10 MEQ, 2X/DAY

REACTIONS (11)
  - DISTURBANCE IN ATTENTION [None]
  - FEAR [None]
  - HEADACHE [None]
  - VISUAL IMPAIRMENT [None]
  - DIARRHOEA [None]
  - MOBILITY DECREASED [None]
  - MUSCLE TWITCHING [None]
  - DECREASED APPETITE [None]
  - ABDOMINAL PAIN [None]
  - NERVOUSNESS [None]
  - FEELING ABNORMAL [None]
